FAERS Safety Report 25049938 (Version 1)
Quarter: 2025Q1

REPORT INFORMATION
  Report Type: Spontaneous
  Country: GB (occurrence: GB)
  Receive Date: 20250307
  Receipt Date: 20250307
  Transmission Date: 20250408
  Serious: Yes (Other)
  Sender: AUROBINDO
  Company Number: GB-MHRA-MED-202502191844122100-MGCSV

PATIENT
  Age: 46 Year
  Sex: Female

DRUGS (1)
  1. ESCITALOPRAM [Suspect]
     Active Substance: ESCITALOPRAM OXALATE
     Indication: Generalised anxiety disorder
     Route: 065

REACTIONS (1)
  - Intrusive thoughts [Not Recovered/Not Resolved]

NARRATIVE: CASE EVENT DATE: 20250127
